FAERS Safety Report 25318823 (Version 2)
Quarter: 2025Q2

REPORT INFORMATION
  Report Type: Report from Study
  Country: US (occurrence: US)
  Receive Date: 20250515
  Receipt Date: 20250523
  Transmission Date: 20250716
  Serious: Yes (Other)
  Sender: JAZZ
  Company Number: US-JAZZ PHARMACEUTICALS-2025-US-011698

PATIENT
  Age: 40 Year
  Sex: Female

DRUGS (11)
  1. SODIUM OXYBATE [Suspect]
     Active Substance: SODIUM OXYBATE
     Indication: Narcolepsy
     Dosage: 2.25 GRAM, BID
  2. SODIUM OXYBATE [Suspect]
     Active Substance: SODIUM OXYBATE
     Indication: Cataplexy
  3. SODIUM OXYBATE [Suspect]
     Active Substance: SODIUM OXYBATE
     Indication: Somnolence
  4. VITAMIN D3 [Concomitant]
     Active Substance: CHOLECALCIFEROL
     Dates: start: 20150626
  5. MAGNESIUM OXIDE [Concomitant]
     Active Substance: MAGNESIUM OXIDE
     Dates: start: 20151215
  6. PEPCID [Concomitant]
     Active Substance: FAMOTIDINE
     Dates: start: 20160201
  7. VITAMINS [Concomitant]
     Active Substance: VITAMINS
     Dates: start: 20240101
  8. OXYCODONE AND ACETAMINOPHEN [Concomitant]
     Active Substance: ACETAMINOPHEN\OXYCODONE HYDROCHLORIDE
     Dates: start: 20250507
  9. LEXAPRO [Concomitant]
     Active Substance: ESCITALOPRAM OXALATE
     Dates: start: 20250405
  10. SELENIUM + ZINC [Concomitant]
     Dates: start: 20250420
  11. INOSITOL [Concomitant]
     Active Substance: INOSITOL
     Dates: start: 20250420

REACTIONS (2)
  - Surgery [Recovering/Resolving]
  - Wisdom teeth removal [Unknown]

NARRATIVE: CASE EVENT DATE: 20250507
